FAERS Safety Report 7974693-6 (Version None)
Quarter: 2011Q4

REPORT INFORMATION
  Report Type: 
  Country: None (occurrence: None)
  Receive Date: 20111213
  Receipt Date: 20111206
  Transmission Date: 20120403
  Serious: No
  Sender: FDA-Public Use
  Company Number: US-B.I. PHARMACEUTICALS,INC./RIDGEFIELD-2011-BP-20244BP

PATIENT
  Sex: Female
  Weight: 79.83 kg

DRUGS (4)
  1. MIRAPEX [Suspect]
     Indication: RESTLESS LEGS SYNDROME
     Dates: start: 20080227, end: 20100401
  2. ESTROGEN-METHYTESTOS H S [Concomitant]
     Dosage: ONCE DAILY
  3. MELOXICAM [Concomitant]
     Indication: ANTIINFLAMMATORY THERAPY
     Dosage: 15 MG
  4. BUPROPION HCL [Concomitant]
     Indication: DISTURBANCE IN ATTENTION
     Dosage: 300 MG

REACTIONS (13)
  - CHEST PAIN [None]
  - WEIGHT INCREASED [None]
  - ANXIETY [None]
  - DEPRESSION [None]
  - SUICIDAL IDEATION [None]
  - IMPULSE-CONTROL DISORDER [None]
  - INSOMNIA [None]
  - PATHOLOGICAL GAMBLING [None]
  - HEART RATE INCREASED [None]
  - EMOTIONAL DISTRESS [None]
  - PANIC ATTACK [None]
  - OBSESSIVE-COMPULSIVE DISORDER [None]
  - STRESS [None]
